FAERS Safety Report 6408715-0 (Version None)
Quarter: 2009Q4

REPORT INFORMATION
  Report Type: 
  Country: None (occurrence: None)
  Receive Date: 20091019
  Receipt Date: 20091009
  Transmission Date: 20100525
  Serious: Yes (Other)
  Sender: FDA-Public Use
  Company Number: 2009AL006616

PATIENT
  Sex: Female

DRUGS (1)
  1. SPIRONOLACTONE [Suspect]
     Indication: DRUG USE FOR UNKNOWN INDICATION
     Dosage: 100 MG, BID

REACTIONS (5)
  - ALOPECIA [None]
  - APHONIA [None]
  - DEPRESSION [None]
  - DYSPHONIA [None]
  - HORMONE LEVEL ABNORMAL [None]
